FAERS Safety Report 19678823 (Version 1)
Quarter: 2021Q3

REPORT INFORMATION
  Report Type: Spontaneous
  Country: US (occurrence: US)
  Receive Date: 20210809
  Receipt Date: 20210809
  Transmission Date: 20211014
  Serious: Yes (Hospitalization)
  Sender: FDA-Public Use
  Company Number: None

PATIENT
  Age: 79 Year
  Sex: Female
  Weight: 66.6 kg

DRUGS (1)
  1. ERTAPENEM. [Suspect]
     Active Substance: ERTAPENEM SODIUM

REACTIONS (3)
  - Delusion [None]
  - Incoherent [None]
  - Hallucination [None]

NARRATIVE: CASE EVENT DATE: 20210806
